FAERS Safety Report 18503197 (Version 2)
Quarter: 2021Q1

REPORT INFORMATION
  Report Type: Spontaneous
  Country: CA (occurrence: CA)
  Receive Date: 20201113
  Receipt Date: 20210112
  Transmission Date: 20210419
  Serious: Yes (Other)
  Sender: FDA-Public Use
  Company Number: CA-SAMSUNG BIOEPIS-SB-2020-34163

PATIENT
  Age: 71 Year
  Sex: Female

DRUGS (5)
  1. INFLIXIMAB [Suspect]
     Active Substance: INFLIXIMAB
     Indication: CROHN^S DISEASE
     Route: 042
  2. LOMOTIL [Concomitant]
     Active Substance: ATROPINE SULFATE\DIPHENOXYLATE HYDROCHLORIDE
     Indication: PRODUCT USED FOR UNKNOWN INDICATION
     Route: 065
  3. LOMOTIL [Concomitant]
     Active Substance: ATROPINE SULFATE\DIPHENOXYLATE HYDROCHLORIDE
     Route: 048
  4. AZATHIOPRINE. [Concomitant]
     Active Substance: AZATHIOPRINE
     Indication: PRODUCT USED FOR UNKNOWN INDICATION
     Route: 048
  5. CHOLESTYRAMINE. [Concomitant]
     Active Substance: CHOLESTYRAMINE
     Indication: PRODUCT USED FOR UNKNOWN INDICATION
     Dosage: UNKNOWN
     Route: 065

REACTIONS (15)
  - Abdominal pain [Unknown]
  - Listless [Unknown]
  - Off label use [Unknown]
  - Fatigue [Unknown]
  - Intestinal polyp [Unknown]
  - Malaise [Unknown]
  - Drug level below therapeutic [Unknown]
  - Intentional product use issue [Unknown]
  - Blood pressure decreased [Unknown]
  - Weight increased [Unknown]
  - Blood pressure systolic increased [Unknown]
  - Weight decreased [Unknown]
  - Blood pressure increased [Unknown]
  - Erythema nodosum [Unknown]
  - Heart rate decreased [Unknown]
